FAERS Safety Report 18217321 (Version 1)
Quarter: 2020Q3

REPORT INFORMATION
  Report Type: Spontaneous
  Country: US (occurrence: US)
  Receive Date: 20200831
  Receipt Date: 20200831
  Transmission Date: 20201103
  Serious: Yes (Hospitalization)
  Sender: FDA-Public Use
  Company Number: None

PATIENT
  Age: 85 Year
  Sex: Male

DRUGS (1)
  1. METOPROLOL (METORPROLOL TARTRATE 50MG TAB)) [Suspect]
     Active Substance: METOPROLOL TARTRATE
     Indication: HYPERTENSION
     Route: 048
     Dates: start: 20200113, end: 20200623

REACTIONS (3)
  - Dizziness [None]
  - Syncope [None]
  - Bradycardia [None]

NARRATIVE: CASE EVENT DATE: 20200623
